FAERS Safety Report 21700890 (Version 1)
Quarter: 2022Q4

REPORT INFORMATION
  Report Type: Spontaneous
  Country: CN (occurrence: CN)
  Receive Date: 20221208
  Receipt Date: 20221208
  Transmission Date: 20230113
  Serious: Yes (Life-Threatening, Other)
  Sender: FDA-Public Use
  Company Number: CN-PFIZER INC-PV202200113681

PATIENT
  Age: 15 Year
  Sex: Female

DRUGS (11)
  1. VORICONAZOLE [Suspect]
     Active Substance: VORICONAZOLE
     Indication: Aplastic anaemia
     Dosage: UNK
  2. FOSFOMYCIN [Suspect]
     Active Substance: FOSFOMYCIN
     Indication: Aplastic anaemia
     Dosage: 4 G, 2X/DAY
     Route: 042
  3. POLYMYXIN [Suspect]
     Active Substance: POLYMYXIN
     Indication: Aplastic anaemia
     Dosage: UNK
  4. MEROPENEM [Suspect]
     Active Substance: MEROPENEM
     Indication: Aplastic anaemia
     Dosage: UNK
  5. MICAFUNGIN [Suspect]
     Active Substance: MICAFUNGIN
     Indication: Aplastic anaemia
     Dosage: UNK
  6. PREDNISONE [Concomitant]
     Active Substance: PREDNISONE
     Dosage: UNK
  7. CYCLOSPORINE [Concomitant]
     Active Substance: CYCLOSPORINE
     Dosage: UNK
  8. DANAZOL [Concomitant]
     Active Substance: DANAZOL
     Dosage: UNK
  9. PIPERACILLIN AND TAZOBACTAM [Concomitant]
     Active Substance: PIPERACILLIN SODIUM\TAZOBACTAM SODIUM
     Indication: Pneumonia
     Dosage: UNK
  10. CEFOPERAZONE\SULBACTAM [Concomitant]
     Active Substance: CEFOPERAZONE\SULBACTAM
     Indication: Pneumonia
     Dosage: UNK
  11. LEVOFLOXACIN [Concomitant]
     Active Substance: LEVOFLOXACIN
     Indication: Pneumonia
     Dosage: UNK

REACTIONS (1)
  - Drug ineffective [Unknown]
